FAERS Safety Report 16905114 (Version 1)
Quarter: 2019Q4

REPORT INFORMATION
  Report Type: Spontaneous
  Country: US (occurrence: US)
  Receive Date: 20191010
  Receipt Date: 20191010
  Transmission Date: 20200122
  Serious: Yes (Hospitalization)
  Sender: FDA-Public Use
  Company Number: None

PATIENT
  Age: 84 Year
  Sex: Female
  Weight: 52.9 kg

DRUGS (12)
  1. WARFARIN [Suspect]
     Active Substance: WARFARIN
     Indication: CARDIAC VENTRICULAR THROMBOSIS
     Dates: start: 20131101
  2. AMIODARONE 200MG DAILY [Concomitant]
  3. LINZESS 145MCG DAILY [Concomitant]
  4. ASPIRIN 81MG DAILY [Concomitant]
     Active Substance: ASPIRIN
  5. WARFARIN [Suspect]
     Active Substance: WARFARIN
     Indication: PERIPHERAL VASCULAR DISORDER
     Dates: start: 20131101
  6. FAMOTIDINE 20MG DAILY [Concomitant]
  7. GUAIFENESIN 600MG Q12HR [Concomitant]
  8. POTASSIUM CHLORIDE 20 MEQ DAILY [Concomitant]
  9. CEFDINIR 300MG Q12HR [Concomitant]
  10. CLOPIDOGREL 75MG DAILY [Concomitant]
  11. FUROSEMIDE 20MG DAILY [Concomitant]
  12. ZOFRAN 4MG PRN [Concomitant]

REACTIONS (2)
  - Gastric ulcer [None]
  - Haematemesis [None]

NARRATIVE: CASE EVENT DATE: 20191005
